FAERS Safety Report 4756202-8 (Version None)
Quarter: 2005Q3

REPORT INFORMATION
  Report Type: 
  Country: None (occurrence: None)
  Receive Date: 20050830
  Receipt Date: 20050504
  Transmission Date: 20060218
  Serious: No
  Sender: FDA-Public Use
  Company Number: US-GLAXOSMITHKLINE-A0557261A

PATIENT
  Sex: Female

DRUGS (2)
  1. WELLBUTRIN XL [Suspect]
     Dosage: 150MG PER DAY
     Route: 048
  2. TESTOSTERONE [Concomitant]
     Route: 062

REACTIONS (3)
  - DIZZINESS [None]
  - INSOMNIA [None]
  - NAUSEA [None]
